FAERS Safety Report 16103859 (Version 1)
Quarter: 2019Q1

REPORT INFORMATION
  Report Type: Spontaneous
  Country: US (occurrence: US)
  Receive Date: 20190322
  Receipt Date: 20190322
  Transmission Date: 20190418
  Serious: No
  Sender: FDA-Public Use
  Company Number: US-HIKMA PHARMACEUTICALS USA INC.-US-H14001-17-04967

PATIENT
  Sex: Male
  Weight: 70.37 kg

DRUGS (3)
  1. MINOXIDIL. [Concomitant]
     Active Substance: MINOXIDIL
     Indication: PRODUCT USED FOR UNKNOWN INDICATION
     Route: 048
  2. CHLORTHALIDONE. [Concomitant]
     Active Substance: CHLORTHALIDONE
     Indication: PRODUCT USED FOR UNKNOWN INDICATION
     Route: 048
  3. FLUTICASONE. [Suspect]
     Active Substance: FLUTICASONE
     Indication: ANTIALLERGIC THERAPY
     Route: 045
     Dates: start: 201710, end: 201711

REACTIONS (3)
  - Respiratory tract congestion [Recovered/Resolved]
  - Drug ineffective [Recovered/Resolved]
  - Infection [Recovered/Resolved]

NARRATIVE: CASE EVENT DATE: 2017
